FAERS Safety Report 16061108 (Version 1)
Quarter: 2019Q1

REPORT INFORMATION
  Report Type: Spontaneous
  Country: US (occurrence: US)
  Receive Date: 20190312
  Receipt Date: 20190312
  Transmission Date: 20190418
  Serious: No
  Sender: FDA-Public Use
  Company Number: US-ROCHE-2126331

PATIENT
  Age: 71 Year
  Sex: Female
  Weight: 54.48 kg

DRUGS (11)
  1. DOXIL [Concomitant]
     Active Substance: DOXORUBICIN HYDROCHLORIDE
     Indication: MALIGNANT PERITONEAL NEOPLASM
     Route: 042
     Dates: start: 201801
  2. AMLODIPINE [Concomitant]
     Active Substance: AMLODIPINE BESYLATE
     Indication: HYPERTENSION
     Route: 048
     Dates: start: 20180511
  3. LISINOPRIL. [Concomitant]
     Active Substance: LISINOPRIL
     Indication: HYPERTENSION
     Route: 048
     Dates: start: 20180509
  4. LISINOPRIL. [Concomitant]
     Active Substance: LISINOPRIL
     Route: 048
  5. TRAMADOL. [Concomitant]
     Active Substance: TRAMADOL
     Indication: HEADACHE
     Route: 048
     Dates: start: 20180507
  6. AVASTIN [Suspect]
     Active Substance: BEVACIZUMAB
     Indication: MALIGNANT PERITONEAL NEOPLASM
  7. EXCEDRIN (UNK INGREDIENTS) [Concomitant]
     Indication: HEADACHE
     Route: 065
     Dates: start: 20180505
  8. AVASTIN [Suspect]
     Active Substance: BEVACIZUMAB
     Indication: OVARIAN CANCER
     Route: 042
     Dates: start: 201801, end: 20180508
  9. LISINOPRIL. [Concomitant]
     Active Substance: LISINOPRIL
     Route: 065
     Dates: start: 20180510
  10. EXCEDRIN (UNK INGREDIENTS) [Concomitant]
     Route: 048
     Dates: start: 20180511
  11. FENTANYL. [Concomitant]
     Active Substance: FENTANYL
     Indication: HEADACHE
     Route: 065
     Dates: start: 20180507, end: 20180507

REACTIONS (9)
  - Epistaxis [Recovering/Resolving]
  - Ocular hyperaemia [Recovering/Resolving]
  - Sunburn [Recovering/Resolving]
  - Blister [Recovering/Resolving]
  - Headache [Not Recovered/Not Resolved]
  - Protein urine present [Unknown]
  - Urine abnormality [Unknown]
  - Fatigue [Recovering/Resolving]
  - Hypertension [Not Recovered/Not Resolved]

NARRATIVE: CASE EVENT DATE: 201802
